FAERS Safety Report 12455729 (Version 2)
Quarter: 2016Q2

REPORT INFORMATION
  Report Type: Spontaneous
  Country: GB (occurrence: GB)
  Receive Date: 20160610
  Receipt Date: 20160621
  Transmission Date: 20160815
  Serious: Yes (Death, Other)
  Sender: FDA-Public Use
  Company Number: GB-PFIZER INC-2016277653

PATIENT
  Age: 55 Year
  Sex: Male
  Weight: 119 kg

DRUGS (2)
  1. XALKORI [Suspect]
     Active Substance: CRIZOTINIB
     Indication: NON-SMALL CELL LUNG CANCER STAGE IV
     Dosage: 250 MG, 2X/DAY
     Route: 048
     Dates: start: 20151014
  2. ZOMETA [Concomitant]
     Active Substance: ZOLEDRONIC ACID
     Dosage: UNK
     Route: 042

REACTIONS (8)
  - Liver function test abnormal [Unknown]
  - Pleural effusion [Unknown]
  - Muscular weakness [Unknown]
  - Pulmonary embolism [Unknown]
  - Disease progression [Not Recovered/Not Resolved]
  - Renal cyst [Unknown]
  - Non-small cell lung cancer stage IV [Not Recovered/Not Resolved]
  - Death [Fatal]

NARRATIVE: CASE EVENT DATE: 20160529
